FAERS Safety Report 10894079 (Version 2)
Quarter: 2015Q1

REPORT INFORMATION
  Report Type: Report from Study
  Country: GR (occurrence: GR)
  Receive Date: 20150306
  Receipt Date: 20150316
  Transmission Date: 20150721
  Serious: Yes (Hospitalization)
  Sender: FDA-Public Use
  Company Number: GR-ABBVIE-14P-066-1283318-00

PATIENT
  Sex: Male

DRUGS (9)
  1. DUODOPA [Suspect]
     Active Substance: CARBIDOPA\LEVODOPA
     Indication: PARKINSON^S DISEASE
     Dosage: MD 10 ML, CD 6.2ML/H, ED 3.5ML
     Route: 050
     Dates: start: 2009
  2. DIGOXIN. [Concomitant]
     Active Substance: DIGOXIN
     Indication: ATRIAL FIBRILLATION
  3. DUODOPA [Suspect]
     Active Substance: CARBIDOPA\LEVODOPA
     Dosage: MD: 10 ML,CD: 5 ML/H,ED 3.5 ML
     Route: 050
  4. LOPRESSOR [Concomitant]
     Active Substance: METOPROLOL TARTRATE
     Indication: HYPERTENSION
     Route: 048
  5. TAVOR [Concomitant]
     Active Substance: LORAZEPAM
     Indication: PRODUCT USED FOR UNKNOWN INDICATION
     Route: 048
  6. OLARTAN PLUS [Concomitant]
     Indication: HYPERTENSION
     Dosage: (20+12.5) MG
     Route: 048
  7. CLEXANE [Concomitant]
     Active Substance: ENOXAPARIN SODIUM
     Indication: PRODUCT USED FOR UNKNOWN INDICATION
     Route: 058
  8. NORVASC [Concomitant]
     Active Substance: AMLODIPINE BESYLATE
     Indication: HYPERTENSION
     Dosage: WHEN SYSTOLIC BLOOD PRESSURE } 170MMHG
     Route: 048
  9. SINTROM [Concomitant]
     Active Substance: ACENOCOUMAROL
     Indication: ATRIAL FIBRILLATION
     Route: 048
     Dates: end: 201409

REACTIONS (6)
  - Musculoskeletal stiffness [Not Recovered/Not Resolved]
  - Abnormal dreams [Recovering/Resolving]
  - Aggression [Not Recovered/Not Resolved]
  - Medication error [Not Recovered/Not Resolved]
  - Obsessive thoughts [Recovering/Resolving]
  - Hallucination [Recovering/Resolving]
